FAERS Safety Report 7728971-6 (Version None)
Quarter: 2011Q3

REPORT INFORMATION
  Report Type: 
  Country: None (occurrence: None)
  Receive Date: 20110906
  Receipt Date: 20110822
  Transmission Date: 20111222
  Serious: Yes (Other)
  Sender: FDA-Public Use
  Company Number: BR-BAYER-2011-079852

PATIENT
  Age: 4 Week
  Sex: Male

DRUGS (2)
  1. SYNTHROID [Concomitant]
     Indication: HYPOTHYROIDISM
     Dosage: 75 ?G, QD
     Route: 063
     Dates: start: 20110226, end: 20110501
  2. MIRENA [Suspect]
     Dosage: UNK
     Route: 063
     Dates: start: 20110401, end: 20110501

REACTIONS (1)
  - FEEDING DISORDER NEONATAL [None]
